FAERS Safety Report 10481649 (Version 1)
Quarter: 2014Q3

REPORT INFORMATION
  Report Type: Spontaneous
  Country: US (occurrence: US)
  Receive Date: 20140929
  Receipt Date: 20140929
  Transmission Date: 20150326
  Serious: Yes (Hospitalization)
  Sender: FDA-Public Use
  Company Number: US-JNJFOC-20140923102

PATIENT
  Age: 83 Year
  Sex: Female

DRUGS (13)
  1. OXYCODONE [Concomitant]
     Active Substance: OXYCODONE
  2. PRILOSEC [Concomitant]
     Active Substance: OMEPRAZOLE MAGNESIUM
  3. BACTRIM DS [Concomitant]
     Active Substance: SULFAMETHOXAZOLE\TRIMETHOPRIM
  4. FUROSEMIDE. [Concomitant]
     Active Substance: FUROSEMIDE
  5. NYSTATIN. [Concomitant]
     Active Substance: NYSTATIN
  6. PLAQUENIL [Concomitant]
     Active Substance: HYDROXYCHLOROQUINE SULFATE
  7. IMBRUVICA [Suspect]
     Active Substance: IBRUTINIB
     Indication: WALDENSTROM^S MACROGLOBULINAEMIA
     Route: 048
     Dates: start: 20140830
  8. METOPROLOL [Concomitant]
     Active Substance: METOPROLOL
  9. CALCIUM CITRATE [Concomitant]
     Active Substance: CALCIUM CITRATE
  10. CENTRUM NOS [Concomitant]
  11. DEXAMETHASONE. [Concomitant]
     Active Substance: DEXAMETHASONE
  12. AMLODIPINE [Concomitant]
     Active Substance: AMLODIPINE BESYLATE
  13. ACYCLOVIR                          /00587301/ [Concomitant]
     Active Substance: ACYCLOVIR

REACTIONS (3)
  - Myelitis [Unknown]
  - Streptococcal infection [Unknown]
  - Pyrexia [Unknown]

NARRATIVE: CASE EVENT DATE: 20140912
